FAERS Safety Report 5734758-6 (Version None)
Quarter: 2008Q2

REPORT INFORMATION
  Report Type: 
  Country: None (occurrence: None)
  Receive Date: 20080508
  Receipt Date: 20080508
  Transmission Date: 20081010
  Serious: Yes (Disabling)
  Sender: FDA-Public Use
  Company Number: None

PATIENT
  Age: 28 Year
  Sex: Female
  Weight: 63.5036 kg

DRUGS (2)
  1. PRO-HEALTH MOUTHWASH PROCTER + GAMBLE [Suspect]
     Indication: DENTAL DISORDER PROPHYLAXIS
     Dosage: 20ML 3 TIMES A DAY DENTAL
     Route: 004
     Dates: start: 20070101, end: 20080507
  2. PRO-HEALTH TOOTHPASTE PROCTER + GAMBLE [Suspect]
     Indication: DENTAL DISORDER PROPHYLAXIS
     Dosage: 1INCH 3 TIMES A DAY DENTAL
     Route: 004
     Dates: start: 20070101, end: 20080507

REACTIONS (3)
  - ANGER [None]
  - FEELING ABNORMAL [None]
  - TOOTH DISCOLOURATION [None]
